FAERS Safety Report 10158711 (Version 1)
Quarter: 2014Q2

REPORT INFORMATION
  Report Type: Spontaneous
  Country: US (occurrence: US)
  Receive Date: 20140508
  Receipt Date: 20140508
  Transmission Date: 20141212
  Serious: No
  Sender: FDA-Public Use
  Company Number: US-BIOGENIDEC-2014BI016473

PATIENT
  Age: 65 Year
  Sex: Female

DRUGS (13)
  1. TECFIDERA [Suspect]
     Indication: MULTIPLE SCLEROSIS
     Route: 048
     Dates: end: 20140124
  2. TECFIDERA [Suspect]
     Indication: MULTIPLE SCLEROSIS
     Route: 048
  3. AVONEX [Concomitant]
     Indication: MULTIPLE SCLEROSIS
     Route: 030
     Dates: start: 20100412
  4. AVONEX [Concomitant]
     Indication: MULTIPLE SCLEROSIS
     Route: 030
     Dates: start: 20130211, end: 20130401
  5. ACTONEL [Concomitant]
  6. HYDROCODONE [Concomitant]
  7. BACLOFEN [Concomitant]
  8. ZOLPIDEM [Concomitant]
  9. TIZANIDINE [Concomitant]
  10. RESTASIS [Concomitant]
  11. ESTRING [Concomitant]
  12. DELESTROGEN [Concomitant]
  13. VITAMIN D 3 [Concomitant]

REACTIONS (5)
  - Paraesthesia oral [Not Recovered/Not Resolved]
  - Gingival pain [Not Recovered/Not Resolved]
  - Flushing [Not Recovered/Not Resolved]
  - Abdominal pain upper [Unknown]
  - Nausea [Not Recovered/Not Resolved]
